FAERS Safety Report 7560780-3 (Version None)
Quarter: 2011Q2

REPORT INFORMATION
  Report Type: 
  Country: None (occurrence: None)
  Receive Date: 20110621
  Receipt Date: 20110322
  Transmission Date: 20111010
  Serious: No
  Sender: FDA-Public Use
  Company Number: US-ASTRAZENECA-2011SE16512

PATIENT
  Age: 88 Year
  Sex: Female

DRUGS (9)
  1. ATACAND [Suspect]
     Route: 048
  2. SANCTURA [Concomitant]
  3. COUMADIN [Concomitant]
  4. TOPROL-XL [Suspect]
     Route: 048
  5. LASIX [Concomitant]
  6. PACQUANIL [Concomitant]
  7. PERSANTINE [Concomitant]
  8. LIPITOR [Concomitant]
  9. LEVATHYROID [Concomitant]

REACTIONS (2)
  - DRY EYE [None]
  - PNEUMONIA [None]
